FAERS Safety Report 7524036-7 (Version None)
Quarter: 2011Q2

REPORT INFORMATION
  Report Type: 
  Country: None (occurrence: None)
  Receive Date: 20110604
  Receipt Date: 20110520
  Transmission Date: 20111010
  Serious: Yes (Congenital Anomaly, Other)
  Sender: FDA-Public Use
  Company Number: US-ARROW GEN-2011-06935

PATIENT
  Sex: Male

DRUGS (3)
  1. TACROLIMUS [Suspect]
     Indication: DRUG EXPOSURE DURING PREGNANCY
     Route: 062
  2. MYCOPHENOLATE MEFETIL [Suspect]
     Indication: DRUG EXPOSURE DURING PREGNANCY
     Dosage: UNK
     Route: 064
  3. PREDNISONE [Suspect]
     Indication: DRUG EXPOSURE DURING PREGNANCY
     Route: 064

REACTIONS (20)
  - VISION ABNORMAL NEONATAL [None]
  - CONGENITAL JAW MALFORMATION [None]
  - MICROGNATHIA [None]
  - SHOULDER DEFORMITY [None]
  - FAILURE TO THRIVE [None]
  - PULMONARY VALVE STENOSIS [None]
  - HEART DISEASE CONGENITAL [None]
  - FOETAL GROWTH RESTRICTION [None]
  - MICROTIA [None]
  - MULTIPLE CONGENITAL ABNORMALITIES [None]
  - ANOTIA [None]
  - DELAYED FONTANELLE CLOSURE [None]
  - RESPIRATORY DISTRESS [None]
  - CLEFT PALATE [None]
  - SKULL MALFORMATION [None]
  - MICROPHTHALMOS [None]
  - DYSMORPHISM [None]
  - NECK DEFORMITY [None]
  - CONNECTIVE TISSUE DISORDER [None]
  - CRYPTORCHISM [None]
